FAERS Safety Report 8515527-0 (Version None)
Quarter: 2012Q3

REPORT INFORMATION
  Report Type: 
  Country: None (occurrence: None)
  Receive Date: 20120717
  Receipt Date: 20120710
  Transmission Date: 20120928
  Serious: Yes (Hospitalization)
  Sender: FDA-Public Use
  Company Number: US-JNJFOC-20120704966

PATIENT
  Sex: Female
  Weight: 68.04 kg

DRUGS (3)
  1. REMICADE [Suspect]
     Indication: COLITIS ULCERATIVE
     Route: 042
     Dates: start: 20100701
  2. COLAZAL [Concomitant]
     Indication: COLITIS ULCERATIVE
     Dates: end: 20120601
  3. REMICADE [Suspect]
     Route: 042
     Dates: start: 20090101, end: 20100101

REACTIONS (4)
  - COLITIS ULCERATIVE [None]
  - MEGACOLON [None]
  - PNEUMONIA [None]
  - PSORIASIS [None]
